FAERS Safety Report 25924001 (Version 3)
Quarter: 2025Q4

REPORT INFORMATION
  Report Type: Report from Study
  Country: US (occurrence: US)
  Receive Date: 20251015
  Receipt Date: 20251230
  Transmission Date: 20260118
  Serious: Yes (Hospitalization, Other)
  Sender: UPSHER SMITH LABORATORIES
  Company Number: US-UPSHER-SMITH LABORATORIES, LLC-20251001304

PATIENT

DRUGS (2)
  1. VIGADRONE [Suspect]
     Active Substance: VIGABATRIN
     Indication: Infantile spasms
     Dosage: 1000 MG, BID (20 ML)
     Route: 048
     Dates: start: 20220413
  2. VIGADRONE [Suspect]
     Active Substance: VIGABATRIN
     Dosage: 1000 MG, BID (20 ML)
     Route: 048
     Dates: start: 20220413

REACTIONS (3)
  - Respiratory disorder [Unknown]
  - Hypoxia [Not Recovered/Not Resolved]
  - Influenza [Not Recovered/Not Resolved]

NARRATIVE: CASE EVENT DATE: 20250101
